FAERS Safety Report 20080554 (Version 5)
Quarter: 2022Q2

REPORT INFORMATION
  Report Type: Report from Study
  Country: US (occurrence: US)
  Receive Date: 20211117
  Receipt Date: 20220414
  Transmission Date: 20220721
  Serious: Yes (Other)
  Sender: FDA-Public Use
  Company Number: US-PFIZER INC-202101210537

PATIENT
  Age: 61 Year
  Sex: Female

DRUGS (2)
  1. IBRANCE [Suspect]
     Active Substance: PALBOCICLIB
     Indication: Breast cancer female
     Dosage: 125 MG, CYCLIC (ONCE DAILY FOR 21 DAYS ON 7 DAYS OFF)
     Route: 048
     Dates: start: 20210905
  2. ANASTROZOLE [Concomitant]
     Active Substance: ANASTROZOLE
     Dosage: UNK, DAILY

REACTIONS (18)
  - Rectal haemorrhage [Recovered/Resolved]
  - Haemorrhage [Unknown]
  - Bowel movement irregularity [Recovered/Resolved]
  - Back pain [Recovered/Resolved]
  - Hot flush [Recovered/Resolved]
  - Vision blurred [Recovering/Resolving]
  - Fatigue [Recovering/Resolving]
  - Alopecia [Unknown]
  - White blood cell count decreased [Unknown]
  - Epistaxis [Unknown]
  - Malaise [Recovered/Resolved]
  - Oropharyngeal pain [Recovered/Resolved]
  - Feeling hot [Recovered/Resolved]
  - Ear discomfort [Unknown]
  - Insomnia [Unknown]
  - Facial discomfort [Unknown]
  - Dry skin [Unknown]
  - Onychoclasis [Unknown]

NARRATIVE: CASE EVENT DATE: 20210101
